FAERS Safety Report 15555024 (Version 1)
Quarter: 2018Q4

REPORT INFORMATION
  Report Type: Report from Study
  Country: US (occurrence: BR)
  Receive Date: 20181026
  Receipt Date: 20181026
  Transmission Date: 20190205
  Serious: Yes (Other)
  Sender: FDA-Public Use
  Company Number: US-SUNOVION-2017SUN005620

PATIENT
  Sex: Male
  Weight: 89 kg

DRUGS (4)
  1. INDACATEROL [Suspect]
     Active Substance: INDACATEROL
     Indication: PRODUCT USED FOR UNKNOWN INDICATION
     Dosage: 150 UG, UNK
     Route: 065
  2. INDACATEROL AND GLYCOPYRROLATE [Suspect]
     Active Substance: GLYCOPYRROLATE\INDACATEROL MALEATE
     Indication: CHRONIC OBSTRUCTIVE PULMONARY DISEASE
     Dosage: 1 DF (GLYCOPYRRONIUM BROMIDE 50 UG/ INDACATEROL 110 UG), QOD
     Route: 055
  3. GLYCOPYRROLATE. [Suspect]
     Active Substance: GLYCOPYRROLATE
     Indication: PRODUCT USED FOR UNKNOWN INDICATION
     Dosage: 50 UG, (IN THE NIGHT)
     Route: 065
  4. ALENIA [Concomitant]
     Active Substance: BUDESONIDE\FORMOTEROL FUMARATE
     Indication: PRODUCT USED FOR UNKNOWN INDICATION
     Route: 065

REACTIONS (18)
  - Respiratory failure [Unknown]
  - Thyroid cancer [Unknown]
  - Fatigue [Unknown]
  - Wrong technique in product usage process [Unknown]
  - Weight increased [Unknown]
  - Posture abnormal [Unknown]
  - Overweight [Unknown]
  - Emphysema [Unknown]
  - Inappropriate schedule of product administration [Unknown]
  - Nervousness [Unknown]
  - Malaise [Recovering/Resolving]
  - Exercise tolerance decreased [Unknown]
  - Body height decreased [Unknown]
  - Headache [Unknown]
  - Dizziness [Recovered/Resolved]
  - Asthma [Unknown]
  - Dyspnoea [Unknown]
  - Product use in unapproved indication [Unknown]
